FAERS Safety Report 8629651 (Version 2)
Quarter: 2013Q2

REPORT INFORMATION
  Report Type: Spontaneous
  Country: CA (occurrence: CA)
  Receive Date: 20120622
  Receipt Date: 20130510
  Transmission Date: 20140414
  Serious: Yes (Hospitalization)
  Sender: FDA-Public Use
  Company Number: CA-JNJFOC-20120607083

PATIENT
  Age: 47 Year
  Sex: Female
  Weight: 72 kg

DRUGS (12)
  1. REMICADE [Suspect]
     Indication: RHEUMATOID ARTHRITIS
     Route: 042
  2. REMICADE [Suspect]
     Indication: RHEUMATOID ARTHRITIS
     Route: 042
     Dates: start: 20100909
  3. REMICADE [Suspect]
     Indication: RHEUMATOID ARTHRITIS
     Route: 042
     Dates: start: 20110517, end: 20120222
  4. REMICADE [Suspect]
     Indication: PSORIATIC ARTHROPATHY
     Route: 042
  5. REMICADE [Suspect]
     Indication: PSORIATIC ARTHROPATHY
     Route: 042
     Dates: start: 20100909
  6. REMICADE [Suspect]
     Indication: PSORIATIC ARTHROPATHY
     Route: 042
     Dates: start: 20110517, end: 20120222
  7. INSULIN [Concomitant]
     Indication: DIABETES MELLITUS
     Route: 065
  8. ATACAND [Concomitant]
     Indication: HYPERTENSION
     Route: 065
  9. NORVASC [Concomitant]
     Indication: HYPERTENSION
     Route: 065
  10. LIPITOR [Concomitant]
     Indication: BLOOD CHOLESTEROL
     Route: 065
  11. FLEXERIL [Concomitant]
     Indication: PRODUCT USED FOR UNKNOWN INDICATION
     Route: 065
  12. MTX [Concomitant]
     Indication: PSORIATIC ARTHROPATHY
     Route: 065

REACTIONS (3)
  - Pancreatitis [Unknown]
  - Urethral operation [Unknown]
  - Salpingectomy [Recovered/Resolved]
